FAERS Safety Report 8023023-2 (Version None)
Quarter: 2012Q1

REPORT INFORMATION
  Report Type: 
  Country: None (occurrence: None)
  Receive Date: 20120104
  Receipt Date: 20111229
  Transmission Date: 20120608
  Serious: Yes (Other)
  Sender: FDA-Public Use
  Company Number: PHHY2011US66233

PATIENT
  Sex: Female

DRUGS (6)
  1. VITAMIN D [Concomitant]
     Route: 048
  2. BACLOFEN [Concomitant]
     Dosage: 20 MG, TID
     Route: 048
  3. NUVIGIL [Concomitant]
     Dosage: 250 MG, QD
     Route: 048
  4. GILENYA [Suspect]
     Indication: MULTIPLE SCLEROSIS
     Dosage: 0.5 MG,DAILY
     Route: 048
     Dates: start: 20110713
  5. AMPYRA [Concomitant]
     Dosage: 10 MG, BID
     Route: 048
  6. ASPIRIN [Concomitant]
     Dosage: 325 MG, QD
     Route: 048

REACTIONS (5)
  - HEART RATE DECREASED [None]
  - BLOOD PRESSURE DECREASED [None]
  - NASOPHARYNGITIS [None]
  - VARICELLA VIRUS TEST POSITIVE [None]
  - ATRIOVENTRICULAR BLOCK FIRST DEGREE [None]
